FAERS Safety Report 7272556-5 (Version None)
Quarter: 2011Q1

REPORT INFORMATION
  Report Type: 
  Country: None (occurrence: None)
  Receive Date: 20110131
  Receipt Date: 20110131
  Transmission Date: 20110831
  Serious: Yes (Other)
  Sender: FDA-Public Use
  Company Number: None

PATIENT
  Age: 73 Year
  Sex: Male
  Weight: 97.5234 kg

DRUGS (1)
  1. METANX N/A, TWO TABLETS A DAY PAMLAB LLC [Suspect]
     Indication: NEUROPATHY PERIPHERAL
     Dosage: 1 TABLETS X 2
     Dates: start: 20110118, end: 20110123

REACTIONS (5)
  - OEDEMA PERIPHERAL [None]
  - PRURITUS [None]
  - PETECHIAE [None]
  - JOINT SWELLING [None]
  - ERYTHEMA [None]
